FAERS Safety Report 19481600 (Version 3)
Quarter: 2022Q3

REPORT INFORMATION
  Report Type: Spontaneous
  Country: JP (occurrence: JP)
  Receive Date: 20210701
  Receipt Date: 20220714
  Transmission Date: 20221027
  Serious: Yes (Hospitalization, Other)
  Sender: FDA-Public Use
  Company Number: JP-GSKNCCC-CASE-01233110_AE-45619

PATIENT

DRUGS (9)
  1. LAMICTAL [Suspect]
     Active Substance: LAMOTRIGINE
     Indication: Bipolar disorder
     Dosage: 25 MG, QOD
     Route: 048
     Dates: start: 20210222, end: 20210307
  2. LAMICTAL [Suspect]
     Active Substance: LAMOTRIGINE
     Dosage: 25 MG, QD
     Route: 048
     Dates: start: 20210308, end: 20210319
  3. VALPROATE SODIUM [Suspect]
     Active Substance: VALPROATE SODIUM
     Indication: Bipolar disorder
     Dosage: UNK
     Route: 048
     Dates: start: 20181030
  4. VALPROATE SODIUM [Suspect]
     Active Substance: VALPROATE SODIUM
     Dosage: 1200 MG, 1D
     Route: 048
     Dates: start: 20190514, end: 20210322
  5. VALPROATE SODIUM [Suspect]
     Active Substance: VALPROATE SODIUM
     Dosage: UNK
     Dates: start: 20210324
  6. AMOBAN TABLETS [Concomitant]
     Indication: Sleep disorder
     Dosage: 10 MG, 1D
     Route: 048
     Dates: start: 20180213
  7. MYSLEE TABLETS [Concomitant]
     Indication: Sleep disorder
     Dosage: 8.75 MG, 1D
     Route: 048
     Dates: start: 20210324
  8. QUETIAPINE FUMARATE [Concomitant]
     Active Substance: QUETIAPINE FUMARATE
     Indication: Sleep disorder
     Dosage: 50 MG, 1D
     Route: 048
     Dates: start: 20200703, end: 20210308
  9. ABILIFY [Concomitant]
     Active Substance: ARIPIPRAZOLE
     Indication: Bipolar disorder
     Dosage: 3 MG, 1D
     Dates: start: 20201106

REACTIONS (4)
  - Drug eruption [Recovered/Resolved]
  - Stomatitis [Recovered/Resolved]
  - Pyrexia [Recovered/Resolved]
  - Mental impairment [Unknown]

NARRATIVE: CASE EVENT DATE: 20210301
